FAERS Safety Report 4839001-8 (Version None)
Quarter: 2005Q4

REPORT INFORMATION
  Report Type: 
  Country: None (occurrence: None)
  Receive Date: 20051024
  Receipt Date: 20050801
  Transmission Date: 20060501
  Serious: No
  Sender: FDA-Public Use
  Company Number: 2005-BP-13043BP

PATIENT
  Sex: Male

DRUGS (1)
  1. APTIVUS [Suspect]
     Indication: HIV INFECTION
     Dosage: (SEE TEXT, TPV/R 250MG/100MG), PO
     Route: 048
     Dates: start: 20050719

REACTIONS (3)
  - ABDOMINAL PAIN UPPER [None]
  - DIARRHOEA [None]
  - FATIGUE [None]
